FAERS Safety Report 8186337-1 (Version None)
Quarter: 2012Q1

REPORT INFORMATION
  Report Type: 
  Country: None (occurrence: None)
  Receive Date: 20120306
  Receipt Date: 20120301
  Transmission Date: 20120608
  Serious: Yes (Other)
  Sender: FDA-Public Use
  Company Number: US-PFIZER INC-2011199231

PATIENT
  Sex: Male

DRUGS (12)
  1. METFORMIN [Concomitant]
     Indication: DIABETES MELLITUS
     Dosage: UNK
  2. AVANDIA [Concomitant]
     Indication: DIABETES MELLITUS
     Dosage: UNK
     Dates: end: 20080101
  3. FLEXERIL [Concomitant]
     Indication: PAIN
     Dosage: UNK
     Dates: start: 20050101, end: 20110101
  4. PERCOCET [Concomitant]
     Indication: PAIN
     Dosage: UNK
     Dates: start: 20050101
  5. CHANTIX [Suspect]
     Indication: SMOKING CESSATION THERAPY
     Dosage: STARTER PACK AND CONTINUING PACKS
     Dates: start: 20070901, end: 20080101
  6. CHANTIX [Suspect]
     Dosage: STARTER PACK AND CONTINUING PACKS
     Dates: start: 20100501, end: 20100501
  7. CLINDAMYCIN [Concomitant]
     Indication: ANTIBIOTIC THERAPY
     Dosage: UNK
     Dates: start: 20050101, end: 20110101
  8. LEVITRA [Concomitant]
     Indication: ERECTILE DYSFUNCTION
     Dosage: UNK
     Dates: start: 20060101, end: 20080101
  9. CHANTIX [Suspect]
     Dosage: STARTER PACK AND CONTINUING PACKS
     Dates: start: 20080201, end: 20080901
  10. GLUCOTROL [Concomitant]
     Indication: DIABETES MELLITUS
     Dosage: UNK
     Dates: start: 20060101, end: 20080101
  11. IBUPROFEN [Concomitant]
     Indication: PAIN
     Dosage: UNK
  12. SYNTHROID [Concomitant]
     Indication: HYPOTHYROIDISM
     Dosage: UNK

REACTIONS (4)
  - DEPRESSION [None]
  - SUICIDAL IDEATION [None]
  - LOSS OF CONSCIOUSNESS [None]
  - ANXIETY [None]
